FAERS Safety Report 7493054-X (Version None)
Quarter: 2011Q2

REPORT INFORMATION
  Report Type: 
  Country: None (occurrence: None)
  Receive Date: 20110520
  Receipt Date: 20110516
  Transmission Date: 20111010
  Serious: Yes (Other)
  Sender: FDA-Public Use
  Company Number: US-PFIZER INC-2011105171

PATIENT
  Sex: Male
  Weight: 109.75 kg

DRUGS (2)
  1. VIAGRA [Suspect]
     Indication: ERECTILE DYSFUNCTION
     Dosage: UNK, DAILY
     Route: 048
     Dates: start: 20110515
  2. CANNABIS [Concomitant]

REACTIONS (2)
  - PAIN [None]
  - ERECTION INCREASED [None]
